FAERS Safety Report 11389926 (Version 2)
Quarter: 2015Q4

REPORT INFORMATION
  Report Type: Report from Study
  Country: BE (occurrence: BE)
  Receive Date: 20150818
  Receipt Date: 20151002
  Transmission Date: 20160304
  Serious: Yes (Other)
  Sender: FDA-Public Use
  Company Number: BE-AMGEN-BELNI2015082363

PATIENT
  Age: 63 Year
  Sex: Female

DRUGS (17)
  1. ALDACTONE [Concomitant]
     Active Substance: SPIRONOLACTONE
     Dosage: 50 MG, QD
     Route: 048
  2. GABAPENTIN. [Concomitant]
     Active Substance: GABAPENTIN
     Dosage: 100 MG, TID
     Route: 048
  3. IBUPROFEN. [Concomitant]
     Active Substance: IBUPROFEN
     Indication: PAIN
  4. TAXOL [Concomitant]
     Active Substance: PACLITAXEL
     Dosage: UNK UNK, QWK
     Dates: start: 20120829, end: 201212
  5. PROMAGNOR [Concomitant]
     Dosage: 1 DF, UNK
     Route: 048
  6. DEXA-RHINASPRAY [Concomitant]
  7. HYALURONIC ACID [Concomitant]
     Active Substance: HYALURONIC ACID
  8. CELESTONE [Concomitant]
     Active Substance: BETAMETHASONE
     Indication: RHINITIS
  9. XGEVA [Suspect]
     Active Substance: DENOSUMAB
     Indication: METASTASES TO BONE
     Dosage: 120 MG, UNK
     Route: 058
     Dates: start: 201212
  10. NEURONTIN [Concomitant]
     Active Substance: GABAPENTIN
     Indication: PRURITUS
     Dosage: 600 MG, UNK
  11. HERCEPTIN [Concomitant]
     Active Substance: TRASTUZUMAB
     Dosage: UNK UNK, Q3WK
     Dates: start: 20120829
  12. SOFRASOLONE [Concomitant]
     Indication: RHINITIS
  13. STEOVIT D3 [Concomitant]
     Active Substance: CALCIUM CARBONATE\CHOLECALCIFEROL
     Indication: PRURITUS ALLERGIC
  14. DENOSUMAB [Suspect]
     Active Substance: DENOSUMAB
     Indication: PRODUCT USED FOR UNKNOWN INDICATION
     Dosage: UNK
     Route: 065
  15. PERTUZUMAB [Concomitant]
     Active Substance: PERTUZUMAB
     Dosage: UNK UNK, Q3WK
     Dates: start: 20120829
  16. LITICAN                            /00690801/ [Concomitant]
     Dosage: 50 MG, QD
     Route: 048
  17. OMEPRAZOLE TEVA                    /00661201/ [Concomitant]
     Active Substance: OMEPRAZOLE
     Dosage: 20 MG, QD
     Route: 048

REACTIONS (1)
  - Osteonecrosis of jaw [Not Recovered/Not Resolved]

NARRATIVE: CASE EVENT DATE: 20150707
